FAERS Safety Report 8380813-4 (Version None)
Quarter: 2012Q2

REPORT INFORMATION
  Report Type: 
  Country: None (occurrence: None)
  Receive Date: 20120523
  Receipt Date: 20120514
  Transmission Date: 20120825
  Serious: Yes (Other)
  Sender: FDA-Public Use
  Company Number: BE-PFIZER INC-2012117793

PATIENT
  Age: 62 Year
  Sex: Female

DRUGS (2)
  1. PANTOPRAZOLE [Suspect]
     Indication: GASTROOESOPHAGEAL REFLUX DISEASE
     Dosage: 40 MG
     Route: 048
     Dates: start: 20120401, end: 20120401
  2. PANTOPRAZOLE [Suspect]
     Dosage: 1 IN 2 D
     Route: 048
     Dates: start: 20120401, end: 20120401

REACTIONS (1)
  - BRONCHOSPASM [None]
